FAERS Safety Report 10231795 (Version 1)
Quarter: 2014Q2

REPORT INFORMATION
  Report Type: Spontaneous
  Country: CN (occurrence: CN)
  Receive Date: 20140612
  Receipt Date: 20140612
  Transmission Date: 20141212
  Serious: Yes (Hospitalization)
  Sender: FDA-Public Use
  Company Number: CN-ROCHE-1416973

PATIENT
  Sex: Female
  Weight: 45 kg

DRUGS (1)
  1. XELODA [Suspect]
     Indication: GASTRIC CANCER
     Route: 048
     Dates: start: 20130218, end: 20130223

REACTIONS (2)
  - Mucosal ulceration [Recovering/Resolving]
  - Diarrhoea [Recovering/Resolving]
